FAERS Safety Report 4608698-X (Version None)
Quarter: 2005Q1

REPORT INFORMATION
  Report Type: 
  Country: None (occurrence: None)
  Receive Date: 20050315
  Receipt Date: 20050215
  Transmission Date: 20050727
  Serious: Yes (Hospitalization)
  Sender: FDA-Public Use
  Company Number: US-MERCK-0502USA02033

PATIENT
  Age: 83 Year
  Sex: Male

DRUGS (3)
  1. VYTORIN [Suspect]
     Indication: BLOOD CHOLESTEROL INCREASED
     Route: 048
     Dates: end: 20050201
  2. LEVAQUIN [Concomitant]
     Route: 065
  3. ZOCOR [Concomitant]
     Route: 048

REACTIONS (3)
  - INFLUENZA [None]
  - PNEUMONIA [None]
  - RHABDOMYOLYSIS [None]
